FAERS Safety Report 6203016-8 (Version None)
Quarter: 2009Q2

REPORT INFORMATION
  Report Type: 
  Country: None (occurrence: None)
  Receive Date: 20090527
  Receipt Date: 20070517
  Transmission Date: 20091009
  Serious: Yes (Other)
  Sender: FDA-Public Use
  Company Number: US-ASTRAZENECA-2006UW11659

PATIENT
  Age: 442 Month
  Sex: Female
  Weight: 127.9 kg

DRUGS (8)
  1. SEROQUEL [Suspect]
     Indication: SCHIZOAFFECTIVE DISORDER
     Route: 048
     Dates: start: 19970101
  2. SEROQUEL [Suspect]
     Dosage: 25-200 MG
     Route: 048
     Dates: start: 19990608
  3. ZYPREXA [Suspect]
  4. ABILIFY [Concomitant]
     Dates: start: 20000101
  5. GLUCOPHAGE [Concomitant]
     Route: 048
     Dates: start: 20011101
  6. GLYBURIDE [Concomitant]
     Route: 048
     Dates: start: 20011101
  7. ACTOS [Concomitant]
     Route: 048
  8. GEODON [Concomitant]
     Route: 048
     Dates: start: 20011101

REACTIONS (2)
  - DIABETES MELLITUS [None]
  - DIABETIC NEPHROPATHY [None]
